FAERS Safety Report 8768366 (Version 2)
Quarter: 2013Q2

REPORT INFORMATION
  Report Type: Report from Study
  Country: FR (occurrence: FR)
  Receive Date: 20120905
  Receipt Date: 20130624
  Transmission Date: 20140414
  Serious: Yes (Other)
  Sender: FDA-Public Use
  Company Number: FR-ROCHE-1038054

PATIENT
  Sex: 0

DRUGS (1)
  1. TOCILIZUMAB [Suspect]
     Indication: SYSTEMIC SCLEROSIS
     Route: 065

REACTIONS (2)
  - Hepatic enzyme increased [Recovered/Resolved]
  - Hepatocellular injury [Unknown]
